FAERS Safety Report 11590156 (Version 3)
Quarter: 2016Q1

REPORT INFORMATION
  Report Type: Spontaneous
  Country: FR (occurrence: FR)
  Receive Date: 20151002
  Receipt Date: 20160318
  Transmission Date: 20160525
  Serious: Yes (Hospitalization, Other)
  Sender: FDA-Public Use
  Company Number: FR-ELI_LILLY_AND_COMPANY-FR201510000202

PATIENT
  Age: 26 Year
  Sex: Female

DRUGS (12)
  1. LEPTICUR [Concomitant]
     Active Substance: TROPATEPINE HYDROCHLORIDE
  2. VALIUM [Concomitant]
     Active Substance: DIAZEPAM
  3. CYAMEMAZINE [Concomitant]
     Active Substance: CYAMEMAZINE
  4. OXCARBAZEPINE. [Concomitant]
     Active Substance: OXCARBAZEPINE
  5. CLOPIXOL                           /00876702/ [Suspect]
     Active Substance: ZUCLOPENTHIXOL ACETATE
     Indication: PRODUCT USED FOR UNKNOWN INDICATION
     Dosage: 25 MG, EVERY 6 HRS
     Route: 048
     Dates: start: 20150810, end: 20150905
  6. ZYRTEC [Concomitant]
     Active Substance: CETIRIZINE HYDROCHLORIDE
  7. TRIMEBUTINE [Concomitant]
     Active Substance: TRIMEBUTINE
  8. FILGRASTIM [Concomitant]
     Active Substance: FILGRASTIM
     Indication: PRODUCT USED FOR UNKNOWN INDICATION
     Dosage: UNK
     Route: 065
     Dates: end: 20151014
  9. PANTOPRAZOLE [Concomitant]
     Active Substance: PANTOPRAZOLE SODIUM
  10. TERCIAN                            /00759301/ [Concomitant]
     Active Substance: CYAMEMAZINE
  11. PROZAC [Suspect]
     Active Substance: FLUOXETINE HYDROCHLORIDE
     Indication: PRODUCT USED FOR UNKNOWN INDICATION
     Dosage: 20 MG, TID
     Route: 048
     Dates: start: 20150730, end: 20150908
  12. BACLOFENE [Suspect]
     Active Substance: BACLOFEN
     Indication: PRODUCT USED FOR UNKNOWN INDICATION
     Dosage: UNK
     Route: 048
     Dates: start: 2013, end: 20150909

REACTIONS (7)
  - Aplasia [Unknown]
  - Bone marrow disorder [Unknown]
  - Pancytopenia [Not Recovered/Not Resolved]
  - Pallor [Unknown]
  - General physical health deterioration [Unknown]
  - Mouth haemorrhage [Unknown]
  - Neutropenia [Unknown]

NARRATIVE: CASE EVENT DATE: 20150904
